FAERS Safety Report 15860608 (Version 1)
Quarter: 2019Q1

REPORT INFORMATION
  Report Type: Spontaneous
  Country: FR (occurrence: FR)
  Receive Date: 20190123
  Receipt Date: 20190123
  Transmission Date: 20190417
  Serious: Yes (Hospitalization, Other)
  Sender: FDA-Public Use
  Company Number: FR-TEVA-2019-FR-1003027

PATIENT
  Age: 16 Year
  Sex: Female
  Weight: 50 kg

DRUGS (6)
  1. RIFADINE [Suspect]
     Active Substance: RIFAMPIN
     Route: 048
  2. PARACETAMOL [Suspect]
     Active Substance: ACETAMINOPHEN
     Route: 042
  3. CARBAMAZEPINE. [Suspect]
     Active Substance: CARBAMAZEPINE
     Route: 048
  4. FLUCONAZOLE. [Suspect]
     Active Substance: FLUCONAZOLE
     Route: 042
  5. URBANYL [Suspect]
     Active Substance: CLOBAZAM
     Route: 048
  6. ESOMEPRAZOLE. [Suspect]
     Active Substance: ESOMEPRAZOLE MAGNESIUM
     Route: 048

REACTIONS (2)
  - Hepatocellular injury [Unknown]
  - Cholestasis [Unknown]

NARRATIVE: CASE EVENT DATE: 20091104
